FAERS Safety Report 12589769 (Version 3)
Quarter: 2016Q3

REPORT INFORMATION
  Report Type: Spontaneous
  Country: US (occurrence: US)
  Receive Date: 20160725
  Receipt Date: 20160810
  Transmission Date: 20161109
  Serious: No
  Sender: FDA-Public Use
  Company Number: US-ACTELION-A-US2016-139303

PATIENT
  Age: 50 Year
  Sex: Male
  Weight: 88.98 kg

DRUGS (3)
  1. UPTRAVI [Suspect]
     Active Substance: SELEXIPAG
     Indication: PULMONARY ARTERIAL HYPERTENSION
     Dosage: 200 MCG, BID
     Route: 048
     Dates: start: 20160627
  2. WARFARIN [Concomitant]
     Active Substance: WARFARIN
  3. OPSUMIT [Concomitant]
     Active Substance: MACITENTAN

REACTIONS (5)
  - Dysuria [Unknown]
  - Abdominal distension [Unknown]
  - Condition aggravated [Unknown]
  - Pollakiuria [Unknown]
  - Diarrhoea [Unknown]
